FAERS Safety Report 18822060 (Version 1)
Quarter: 2021Q1

REPORT INFORMATION
  Report Type: Spontaneous
  Country: US (occurrence: US)
  Receive Date: 20210202
  Receipt Date: 20210202
  Transmission Date: 20210419
  Serious: No
  Sender: FDA-Public Use
  Company Number: US-ALXN-A202101506

PATIENT

DRUGS (2)
  1. STRENSIQ [Suspect]
     Active Substance: ASFOTASE ALFA
     Indication: OSTEOPOROSIS
     Dosage: UNK
     Route: 065
     Dates: start: 202011
  2. STRENSIQ [Suspect]
     Active Substance: ASFOTASE ALFA
     Indication: OFF LABEL USE

REACTIONS (1)
  - Off label use [Unknown]
